FAERS Safety Report 14686549 (Version 3)
Quarter: 2018Q3

REPORT INFORMATION
  Report Type: Spontaneous
  Country: CZ (occurrence: CZ)
  Receive Date: 20180327
  Receipt Date: 20180807
  Transmission Date: 20181010
  Serious: Yes (Other)
  Sender: FDA-Public Use
  Company Number: -SA-2018SA012072

PATIENT
  Age: 65 Year
  Sex: Female
  Weight: 68 kg

DRUGS (10)
  1. GLIMEPIRIDE. [Suspect]
     Active Substance: GLIMEPIRIDE
     Indication: TYPE 2 DIABETES MELLITUS
     Dosage: 2 MG
     Dates: start: 200610, end: 201108
  2. FLUVASTATIN [Concomitant]
     Active Substance: FLUVASTATIN SODIUM
     Indication: HYPERTENSION
     Dosage: UNK UNK,UNK
     Dates: start: 2006
  3. INSULIN [Concomitant]
     Active Substance: INSULIN NOS
     Dosage: 20 IU,QD
     Dates: start: 2006, end: 200610
  4. METFORMIN HYDROCHLORIDE. [Concomitant]
     Active Substance: METFORMIN HYDROCHLORIDE
     Indication: TYPE 2 DIABETES MELLITUS
     Dosage: 1000 MG,QD
     Route: 048
     Dates: start: 2006, end: 2006
  5. AMLODIPINE [Concomitant]
     Active Substance: AMLODIPINE BESYLATE
     Indication: HYPERTENSION
     Dosage: 5 MG,QD
     Route: 048
     Dates: start: 2006
  6. RAMIPRIL. [Concomitant]
     Active Substance: RAMIPRIL
     Indication: HYPERTENSION
     Dosage: UNK
     Dates: start: 2006, end: 2006
  7. ATORVASTATIN CALCIUM. [Suspect]
     Active Substance: ATORVASTATIN CALCIUM
     Indication: HYPERTENSION
     Dosage: 10 MG,UNK
     Route: 048
     Dates: start: 2006, end: 2006
  8. RAMIPRIL. [Concomitant]
     Active Substance: RAMIPRIL
     Dosage: 10 MG,QD
     Route: 048
     Dates: start: 2006
  9. METFORMIN HYDROCHLORIDE. [Concomitant]
     Active Substance: METFORMIN HYDROCHLORIDE
     Dosage: 1700 MG,UNK
     Route: 048
     Dates: start: 200610
  10. INSULIN [Concomitant]
     Active Substance: INSULIN NOS
     Indication: TYPE 2 DIABETES MELLITUS
     Dosage: UNK UNK,UNK
     Dates: start: 2006, end: 2006

REACTIONS (2)
  - Liver function test increased [Unknown]
  - Hypoglycaemia [Unknown]

NARRATIVE: CASE EVENT DATE: 2006
